FAERS Safety Report 4373742-4 (Version None)
Quarter: 2004Q2

REPORT INFORMATION
  Report Type: 
  Country: None (occurrence: None)
  Receive Date: 20040603
  Receipt Date: 20040514
  Transmission Date: 20050107
  Serious: Yes (Death, Other)
  Sender: FDA-Public Use
  Company Number: FR_040504125

PATIENT
  Age: 78 Year
  Sex: Female
  Weight: 65 kg

DRUGS (4)
  1. ZYPREXA [Suspect]
     Indication: PSYCHOTIC DISORDER
     Dosage: 5 MG/1 DAY
     Dates: start: 20030602
  2. LEVOTHYROX (LEVOTHYROXINE SODIUM) [Concomitant]
  3. LEXOMIL (BROMAZEPAM) [Concomitant]
  4. IXEL (MILNACIPRAN) [Concomitant]

REACTIONS (2)
  - CYANOSIS [None]
  - RESPIRATORY ARREST [None]
